FAERS Safety Report 14239180 (Version 3)
Quarter: 2017Q4

REPORT INFORMATION
  Report Type: Spontaneous
  Country: DE (occurrence: DE)
  Receive Date: 20171130
  Receipt Date: 20171229
  Transmission Date: 20180321
  Serious: Yes (Other)
  Sender: FDA-Public Use
  Company Number: DE-WEST-WARD PHARMACEUTICALS CORP.-DE-H14001-17-04519

PATIENT
  Age: 59 Year
  Sex: Female

DRUGS (10)
  1. METHYLPREDNISOLONE. [Suspect]
     Active Substance: METHYLPREDNISOLONE
     Indication: AUTOIMMUNE THYROIDITIS
     Route: 065
     Dates: start: 2016, end: 201609
  2. ARIPIPRAZOLE. [Concomitant]
     Active Substance: ARIPIPRAZOLE
     Indication: NERVOUS SYSTEM DISORDER
     Dosage: 1
     Route: 065
     Dates: start: 2016, end: 201609
  3. METHYLPREDNISOLONE. [Suspect]
     Active Substance: METHYLPREDNISOLONE
     Indication: HASHIMOTO^S ENCEPHALOPATHY
  4. LORAZEPAM. [Suspect]
     Active Substance: LORAZEPAM
     Indication: ANXIETY
     Route: 065
     Dates: start: 2016, end: 2016
  5. VENLAFAXINE [Concomitant]
     Active Substance: VENLAFAXINE HYDROCHLORIDE
     Indication: DEPRESSION
     Dosage: 1
     Route: 065
     Dates: start: 2016, end: 201609
  6. CITALOPRAM [Concomitant]
     Active Substance: CITALOPRAM HYDROBROMIDE
     Indication: DEPRESSION
     Route: 065
     Dates: start: 2016, end: 201609
  7. QUETIAPINE. [Concomitant]
     Active Substance: QUETIAPINE
     Indication: NERVOUS SYSTEM DISORDER
     Route: 065
     Dates: start: 2016, end: 201609
  8. AMISULPRIDE [Concomitant]
     Active Substance: AMISULPRIDE
     Indication: NERVOUS SYSTEM DISORDER
     Route: 065
     Dates: start: 2016, end: 201609
  9. RISPERIDONE. [Concomitant]
     Active Substance: RISPERIDONE
     Indication: NERVOUS SYSTEM DISORDER
     Route: 065
     Dates: start: 2016, end: 201609
  10. FLUPENTIXOL [Concomitant]
     Active Substance: FLUPENTIXOL
     Indication: NERVOUS SYSTEM DISORDER
     Route: 065
     Dates: start: 2016, end: 2016

REACTIONS (4)
  - Condition aggravated [Recovering/Resolving]
  - Apathy [Recovering/Resolving]
  - Drug ineffective [Unknown]
  - Cognitive disorder [Recovering/Resolving]

NARRATIVE: CASE EVENT DATE: 2016
